FAERS Safety Report 10840153 (Version 1)
Quarter: 2015Q1

REPORT INFORMATION
  Report Type: Report from Study
  Country: US (occurrence: US)
  Receive Date: 20150220
  Receipt Date: 20150220
  Transmission Date: 20150721
  Serious: Yes (Other)
  Sender: FDA-Public Use
  Company Number: US-ABBVIE-14P-163-1245984-00

PATIENT
  Sex: Male

DRUGS (2)
  1. METHOTREXATE [Concomitant]
     Active Substance: METHOTREXATE
     Indication: PRODUCT USED FOR UNKNOWN INDICATION
  2. HUMIRA [Suspect]
     Active Substance: ADALIMUMAB
     Indication: JUVENILE IDIOPATHIC ARTHRITIS
     Dates: start: 201308

REACTIONS (5)
  - Ankle operation [Unknown]
  - Knee operation [Unknown]
  - Injection site pain [Unknown]
  - Juvenile idiopathic arthritis [Unknown]
  - Eye laser surgery [Not Recovered/Not Resolved]

NARRATIVE: CASE EVENT DATE: 201308
